FAERS Safety Report 9471075 (Version 1)
Quarter: 2013Q3

REPORT INFORMATION
  Report Type: Spontaneous
  Country: JP (occurrence: JP)
  Receive Date: 20130822
  Receipt Date: 20130822
  Transmission Date: 20140515
  Serious: No
  Sender: FDA-Public Use
  Company Number: JP-SUCAMPO PHARMA AMERICAS, INC-SPI201300611

PATIENT
  Age: 81 Year
  Sex: Male

DRUGS (1)
  1. AMITIZA [Suspect]
     Dosage: 24 MCG, UNK
     Route: 048
     Dates: start: 201308

REACTIONS (1)
  - Dyspnoea [Unknown]
